FAERS Safety Report 7754136-8 (Version None)
Quarter: 2011Q3

REPORT INFORMATION
  Report Type: 
  Country: None (occurrence: None)
  Receive Date: 20110915
  Receipt Date: 20110906
  Transmission Date: 20111222
  Serious: Yes (Other)
  Sender: FDA-Public Use
  Company Number: US-ASTRAZENECA-2010SE54049

PATIENT
  Age: 807 Month
  Sex: Male
  Weight: 86.2 kg

DRUGS (20)
  1. SEROQUEL XR [Suspect]
     Indication: DEPRESSION
     Route: 048
  2. METFORMIN HYDROCHLORIDE [Concomitant]
  3. ASPIRIN [Concomitant]
  4. DILTIAZEM [Concomitant]
  5. SEROQUEL XR [Suspect]
     Route: 048
     Dates: start: 20100501, end: 20101101
  6. GLYCOSIDE [Concomitant]
  7. CLONIDINE [Concomitant]
  8. SERTRALINE HYDROCHLORIDE [Concomitant]
  9. NEXIUM [Suspect]
     Route: 048
  10. SEROQUEL XR [Suspect]
     Route: 048
     Dates: start: 20100901
  11. ZOLPIDEM [Concomitant]
  12. SEROQUEL XR [Suspect]
     Indication: SUICIDAL IDEATION
     Route: 048
  13. SEROQUEL XR [Suspect]
     Route: 048
     Dates: start: 20100501, end: 20101101
  14. SEROQUEL XR [Suspect]
     Route: 048
     Dates: start: 20100901
  15. SEROQUEL XR [Suspect]
     Route: 048
     Dates: start: 20100901
  16. LISINOPRIL [Concomitant]
  17. SIMVASTATIN [Concomitant]
  18. SEROQUEL XR [Suspect]
     Route: 048
     Dates: start: 20100501, end: 20101101
  19. SEROQUEL XR [Suspect]
     Indication: MOOD SWINGS
     Route: 048
  20. ZETIA [Concomitant]

REACTIONS (12)
  - HYPERHIDROSIS [None]
  - THINKING ABNORMAL [None]
  - DRUG DOSE OMISSION [None]
  - SUICIDAL IDEATION [None]
  - ANXIETY [None]
  - NAUSEA [None]
  - INSOMNIA [None]
  - DEPRESSED MOOD [None]
  - TREMOR [None]
  - INFLUENZA [None]
  - MALAISE [None]
  - DIZZINESS [None]
